FAERS Safety Report 11919820 (Version 3)
Quarter: 2016Q2

REPORT INFORMATION
  Report Type: Spontaneous
  Country: AT (occurrence: AT)
  Receive Date: 20160115
  Receipt Date: 20160608
  Transmission Date: 20160815
  Serious: Yes (Other)
  Sender: FDA-Public Use
  Company Number: AT-LEO PHARMA-239625

PATIENT
  Age: 52 Year
  Sex: Female

DRUGS (1)
  1. PICATO [Suspect]
     Active Substance: INGENOL MEBUTATE
     Indication: ACTINIC KERATOSIS
     Dosage: ONE SINGLE APPLICATION ON PATIENT^S CHEEK

REACTIONS (6)
  - Incorrect drug administration duration [Unknown]
  - Swollen tongue [Recovered/Resolved]
  - Eye pain [Recovered/Resolved]
  - Dyspnoea [Recovered/Resolved]
  - Lip swelling [Recovered/Resolved]
  - Hypersensitivity [Recovered/Resolved]
